FAERS Safety Report 15943500 (Version 1)
Quarter: 2019Q1

REPORT INFORMATION
  Report Type: Spontaneous
  Country: US (occurrence: US)
  Receive Date: 20190122
  Receipt Date: 20190122
  Transmission Date: 20190417
  Serious: No
  Sender: FDA-Public Use
  Company Number: None

PATIENT
  Age: 39 Year
  Sex: Female

DRUGS (1)
  1. TALTZ [Suspect]
     Active Substance: IXEKIZUMAB
     Indication: PSORIASIS
     Dosage: INJECT 80MG (1 PEN) SUBCUTANEOUSLY  AT WEEK  12 THEN?EVERY 4 WEEKS AS DIRECTED?
     Route: 058
     Dates: start: 201810

REACTIONS (3)
  - Gastrointestinal disorder [None]
  - Sinusitis [None]
  - Upper respiratory tract infection [None]
